FAERS Safety Report 18563306 (Version 3)
Quarter: 2020Q4

REPORT INFORMATION
  Report Type: Spontaneous
  Country: US (occurrence: US)
  Receive Date: 20201201
  Receipt Date: 20201230
  Transmission Date: 20210114
  Serious: Yes (Other)
  Sender: FDA-Public Use
  Company Number: US-APOTEX-2020AP022624

PATIENT
  Sex: Female

DRUGS (1)
  1. OMEPRAZOLE  DELAYED -RELEASE CAPSULES [Suspect]
     Active Substance: OMEPRAZOLE
     Indication: PRODUCT USED FOR UNKNOWN INDICATION
     Dosage: 40 MILLIGRAM, QD
     Route: 065

REACTIONS (6)
  - Hypersensitivity [Unknown]
  - Throat tightness [Unknown]
  - Urticaria [Unknown]
  - Lip swelling [Unknown]
  - Product formulation issue [Unknown]
  - Swollen tongue [Unknown]
